FAERS Safety Report 7933486-6 (Version None)
Quarter: 2011Q4

REPORT INFORMATION
  Report Type: 
  Country: None (occurrence: None)
  Receive Date: 20111122
  Receipt Date: 20111023
  Transmission Date: 20120403
  Serious: No
  Sender: FDA-Public Use
  Company Number: US-BAYER-2011-104439

PATIENT
  Age: 35 Year
  Sex: Female
  Weight: 73 kg

DRUGS (2)
  1. ALEVE (CAPLET) [Suspect]
     Route: 048
  2. ASCORBIC ACID [Concomitant]

REACTIONS (1)
  - NO ADVERSE EVENT [None]
